FAERS Safety Report 7652971-8 (Version None)
Quarter: 2011Q3

REPORT INFORMATION
  Report Type: 
  Country: None (occurrence: None)
  Receive Date: 20110729
  Receipt Date: 20110317
  Transmission Date: 20111222
  Serious: Yes (Other)
  Sender: FDA-Public Use
  Company Number: 2011SP012223

PATIENT
  Age: 56 Year
  Sex: Male

DRUGS (2)
  1. INTERFERON [Suspect]
     Indication: HEPATITIS C
     Dates: start: 20080601, end: 20091101
  2. RIBAVIRIN [Suspect]
     Indication: HEPATITIS C
     Dosage: SC
     Route: 058
     Dates: start: 20080601, end: 20091101

REACTIONS (2)
  - THYROID DISORDER [None]
  - DRUG INEFFECTIVE [None]
